FAERS Safety Report 4928526-2 (Version None)
Quarter: 2006Q1

REPORT INFORMATION
  Report Type: 
  Country: None (occurrence: None)
  Receive Date: 20060223
  Receipt Date: 20060210
  Transmission Date: 20060701
  Serious: Yes (Other)
  Sender: FDA-Public Use
  Company Number: 200610239BYL

PATIENT
  Age: 76 Year
  Sex: Male
  Weight: 60 kg

DRUGS (2)
  1. ASPIRIN [Suspect]
     Indication: THROMBOTIC STROKE
     Dosage: 200 MG, QD, ORAL
     Route: 048
     Dates: start: 20060125, end: 20060129
  2. CATACLOT (OZAGREL SODIUM) [Suspect]
     Indication: THROMBOTIC STROKE
     Dosage: 80 MG, BID, INTRAVENOUS DRIP
     Route: 041
     Dates: start: 20060128, end: 20060129

REACTIONS (3)
  - ASTHMA [None]
  - PAROTITIS [None]
  - URTICARIA [None]
